FAERS Safety Report 5828058-3 (Version None)
Quarter: 2008Q3

REPORT INFORMATION
  Report Type: 
  Country: None (occurrence: None)
  Receive Date: 20080730
  Receipt Date: 20080313
  Transmission Date: 20090109
  Serious: No
  Sender: FDA-Public Use
  Company Number: A0715247A

PATIENT
  Age: 50 Year
  Sex: Female

DRUGS (2)
  1. RANITIDINE HCL [Suspect]
     Dosage: 150MG TWICE PER DAY
     Route: 048
     Dates: start: 20080311
  2. LISINOPRIL [Concomitant]

REACTIONS (1)
  - ABDOMINAL PAIN UPPER [None]
